FAERS Safety Report 5095803-7 (Version None)
Quarter: 2006Q3

REPORT INFORMATION
  Report Type: 
  Country: None (occurrence: None)
  Receive Date: 20060905
  Receipt Date: 20060825
  Transmission Date: 20061208
  Serious: Yes (Death)
  Sender: FDA-Public Use
  Company Number: GB-JNJFOC-20060504113

PATIENT
  Sex: Male
  Weight: 12 kg

DRUGS (6)
  1. DURAGESIC-50 [Suspect]
     Indication: ANALGESIC EFFECT
     Route: 062
  2. GABAPENTIN [Concomitant]
     Indication: PAIN
     Route: 065
  3. ORAMORPH SR [Concomitant]
     Indication: PAIN
     Route: 048
  4. LACTULOSE [Concomitant]
     Indication: CONSTIPATION
     Route: 048
  5. CIPROFLOXACIN [Concomitant]
     Indication: PROPHYLAXIS
     Route: 065
  6. MOVICOL [Concomitant]
     Indication: CONSTIPATION
     Route: 065

REACTIONS (3)
  - APPLICATION SITE ERYTHEMA [None]
  - APPLICATION SITE PAIN [None]
  - DISEASE PROGRESSION [None]
